FAERS Safety Report 11441737 (Version 1)
Quarter: 2015Q3

REPORT INFORMATION
  Report Type: Report from Study
  Country: BR (occurrence: BR)
  Receive Date: 20150901
  Receipt Date: 20150901
  Transmission Date: 20151125
  Serious: Yes (Death, Hospitalization)
  Sender: FDA-Public Use
  Company Number: PHHY2015BR104405

PATIENT
  Sex: Male
  Weight: 77 kg

DRUGS (2)
  1. ONBREZ BREEZHALER [Suspect]
     Active Substance: INDACATEROL
     Indication: PULMONARY MASS
     Dosage: 300 UG, EVERY 12 HOURS QD
     Route: 065
     Dates: start: 2015, end: 20150701
  2. ONBREZ BREEZHALER [Suspect]
     Active Substance: INDACATEROL
     Indication: LUNG DISORDER

REACTIONS (7)
  - Nervous system disorder [Unknown]
  - Product use issue [Unknown]
  - Lung infection [Unknown]
  - Nosocomial infection [Fatal]
  - Pleural disorder [Unknown]
  - Lung neoplasm malignant [Fatal]
  - Fatigue [Unknown]

NARRATIVE: CASE EVENT DATE: 2015
